FAERS Safety Report 4861835-4 (Version None)
Quarter: 2005Q4

REPORT INFORMATION
  Report Type: 
  Country: None (occurrence: None)
  Receive Date: 20051130
  Receipt Date: 20050124
  Transmission Date: 20060501
  Serious: Yes (Hospitalization)
  Sender: FDA-Public Use
  Company Number: 2005020312

PATIENT
  Age: 52 Year
  Sex: Male
  Weight: 90.7194 kg

DRUGS (3)
  1. ZYVOX [Suspect]
     Indication: BACTERIAL INFECTION
     Dosage: 1200 MG (600 MG, TWICE DAILY), ORAL
     Route: 048
     Dates: start: 20050114, end: 20050119
  2. VALACICLOVIR HYDROCHLORIDE (VALACICLOVIR HYDROCHLORIDE) [Concomitant]
  3. LANSOPRAZOLE [Concomitant]

REACTIONS (3)
  - HYPERSENSITIVITY [None]
  - PYREXIA [None]
  - RASH [None]
